FAERS Safety Report 5488826-7 (Version None)
Quarter: 2007Q4

REPORT INFORMATION
  Report Type: 
  Country: None (occurrence: None)
  Receive Date: 20071016
  Receipt Date: 20070808
  Transmission Date: 20080405
  Serious: Yes (Hospitalization, Other)
  Sender: FDA-Public Use
  Company Number: 2007BI008475

PATIENT
  Age: 44 Year
  Sex: Female

DRUGS (3)
  1. AVONEX [Suspect]
     Indication: MULTIPLE SCLEROSIS
     Dosage: 30 UG; QW; IM
     Route: 030
     Dates: start: 20060201
  2. CARBAMAZEPINE [Concomitant]
  3. GABAPENTIN [Concomitant]

REACTIONS (10)
  - DEMYELINATION [None]
  - FALL [None]
  - HEMIPLEGIA [None]
  - MULTIPLE SCLEROSIS [None]
  - MULTIPLE SCLEROSIS RELAPSE [None]
  - NEUROGENIC BLADDER [None]
  - PAIN [None]
  - PARAPLEGIA [None]
  - SKULL FRACTURE [None]
  - URINARY TRACT INFECTION [None]
